FAERS Safety Report 6993163-5 (Version None)
Quarter: 2010Q3

REPORT INFORMATION
  Report Type: 
  Country: None (occurrence: None)
  Receive Date: 20100917
  Receipt Date: 20100319
  Transmission Date: 20110219
  Serious: No
  Sender: FDA-Public Use
  Company Number: US-ASTRAZENECA-2009SE33851

PATIENT
  Age: 36 Year
  Sex: Male
  Weight: 83.9 kg

DRUGS (3)
  1. SEROQUEL XR [Suspect]
     Route: 048
     Dates: start: 19920101
  2. NITROGLYCERIN [Concomitant]
  3. ZOLOFT [Concomitant]

REACTIONS (14)
  - ASTHENIA [None]
  - CHEST PAIN [None]
  - CONFUSIONAL STATE [None]
  - FATIGUE [None]
  - GASTROOESOPHAGEAL REFLUX DISEASE [None]
  - HYPERTENSION [None]
  - LIPIDS INCREASED [None]
  - NIGHT SWEATS [None]
  - OSTEOARTHRITIS [None]
  - PARAESTHESIA [None]
  - PYREXIA [None]
  - TACHYCARDIA [None]
  - TREMOR [None]
  - WEIGHT INCREASED [None]
